FAERS Safety Report 5126274-X (Version None)
Quarter: 2006Q3

REPORT INFORMATION
  Report Type: 
  Country: None (occurrence: None)
  Receive Date: 20060824
  Receipt Date: 20060515
  Transmission Date: 20061208
  Serious: Yes (Life-Threatening, Hospitalization, Other)
  Sender: FDA-Public Use
  Company Number: WAES 0605USA02727

PATIENT
  Age: 79 Year
  Sex: Female

DRUGS (10)
  1. VYTORIN [Suspect]
     Indication: HYPERCHOLESTEROLAEMIA
     Dosage: 10-80 MG/DAILY/PO
     Route: 048
     Dates: end: 20060504
  2. BENICAR [Concomitant]
  3. COUMADIN [Concomitant]
  4. LASIX [Concomitant]
  5. SYNTHROID [Concomitant]
  6. DIGOXIN [Concomitant]
  7. ESTRADIOL INJ [Concomitant]
  8. POTASSIUM ACETATE [Concomitant]
  9. PROGESTERONE [Concomitant]
  10. SOTALOL HYDROCHLORIDE [Concomitant]

REACTIONS (2)
  - RENAL FAILURE ACUTE [None]
  - RHABDOMYOLYSIS [None]
